FAERS Safety Report 15709030 (Version 14)
Quarter: 2019Q3

REPORT INFORMATION
  Report Type: Report from Study
  Country: US (occurrence: US)
  Receive Date: 20181211
  Receipt Date: 20190712
  Transmission Date: 20191004
  Serious: Yes (Hospitalization, Other)
  Sender: FDA-Public Use
  Company Number: US-TESARO-2018-TSO1804-US

PATIENT
  Age: 65 Year
  Sex: Female
  Weight: 68 kg

DRUGS (11)
  1. ZEJULA [Suspect]
     Active Substance: NIRAPARIB
     Dosage: 100 MG, QPM WITH FOOD
     Route: 048
     Dates: start: 20190127
  2. ZEJULA [Suspect]
     Active Substance: NIRAPARIB
     Dosage: 100 MG, QD HS WITH FOOD
     Route: 048
  3. SENNA [Concomitant]
     Active Substance: SENNA LEAF\SENNOSIDES\SENNOSIDES A AND B
     Indication: PRODUCT USED FOR UNKNOWN INDICATION
  4. VITAMIN C [Concomitant]
     Active Substance: ASCORBIC ACID
     Indication: PRODUCT USED FOR UNKNOWN INDICATION
  5. ZEJULA [Suspect]
     Active Substance: NIRAPARIB
     Dosage: 200 MG, QPM WITHOUT FOOD
     Route: 048
     Dates: start: 20181127
  6. CALCIUM [Concomitant]
     Active Substance: CALCIUM
     Indication: PRODUCT USED FOR UNKNOWN INDICATION
  7. VITAMIN B6 [Concomitant]
     Active Substance: PYRIDOXINE HYDROCHLORIDE
     Indication: PRODUCT USED FOR UNKNOWN INDICATION
  8. XARELTO [Concomitant]
     Active Substance: RIVAROXABAN
     Indication: PRODUCT USED FOR UNKNOWN INDICATION
     Dosage: 20 MG, UNK
  9. ZEJULA [Suspect]
     Active Substance: NIRAPARIB
     Indication: OVARIAN CANCER
     Dosage: 200 MG, QD
     Route: 048
     Dates: start: 20181111, end: 201811
  10. ATIVAN [Concomitant]
     Active Substance: LORAZEPAM
     Indication: PRODUCT USED FOR UNKNOWN INDICATION
     Dosage: 0.5 MG, UNK
  11. MULTIVITAMINS [Concomitant]
     Active Substance: VITAMINS
     Indication: PRODUCT USED FOR UNKNOWN INDICATION

REACTIONS (31)
  - Neoplasm progression [Not Recovered/Not Resolved]
  - Gastritis [Recovering/Resolving]
  - Dizziness [Unknown]
  - Red blood cell count decreased [Unknown]
  - Fatigue [Not Recovered/Not Resolved]
  - Abdominal pain [Recovered/Resolved]
  - Migraine [Recovered/Resolved]
  - Burning sensation [Not Recovered/Not Resolved]
  - Nausea [Not Recovered/Not Resolved]
  - Vomiting [Recovered/Resolved]
  - Asthenia [Unknown]
  - Loss of personal independence in daily activities [Not Recovered/Not Resolved]
  - Full blood count decreased [Unknown]
  - Pruritus [Not Recovered/Not Resolved]
  - Hyposmia [Unknown]
  - Nausea [Recovered/Resolved]
  - Anxiety [Not Recovered/Not Resolved]
  - Blood blister [Unknown]
  - Chest pain [Recovered/Resolved]
  - Decreased appetite [Not Recovered/Not Resolved]
  - Diarrhoea [Recovered/Resolved]
  - Rash [Not Recovered/Not Resolved]
  - Rash erythematous [Unknown]
  - Cognitive disorder [Unknown]
  - Insomnia [Unknown]
  - Proctitis [Recovered/Resolved]
  - Feeling abnormal [Not Recovered/Not Resolved]
  - Carbohydrate antigen 125 increased [Recovered/Resolved]
  - Headache [Not Recovered/Not Resolved]
  - Ageusia [Unknown]
  - Depression [Not Recovered/Not Resolved]

NARRATIVE: CASE EVENT DATE: 201811
